FAERS Safety Report 6702286-7 (Version None)
Quarter: 2010Q2

REPORT INFORMATION
  Report Type: 
  Country: None (occurrence: None)
  Receive Date: 20100429
  Receipt Date: 20100421
  Transmission Date: 20101027
  Serious: Yes (Death)
  Sender: FDA-Public Use
  Company Number: GXKR2010PK04499

PATIENT
  Age: 32 Year
  Sex: Male

DRUGS (2)
  1. AZATHIOPRINE SODIUM [Suspect]
     Indication: IMMUNOSUPPRESSION
     Dosage: 300 MG/DAY
     Route: 048
     Dates: start: 20000101
  2. PREDNISOLONE [Suspect]
     Indication: IMMUNOSUPPRESSION
     Dosage: 10 MG/DAY
     Route: 048
     Dates: start: 20000101

REACTIONS (8)
  - B-CELL LYMPHOMA STAGE III [None]
  - LEFT VENTRICULAR HYPERTROPHY [None]
  - LEUKOPENIA [None]
  - LYMPHADENOPATHY [None]
  - LYMPHOPROLIFERATIVE DISORDER [None]
  - MASS EXCISION [None]
  - SEPSIS [None]
  - SPLENOMEGALY [None]
